FAERS Safety Report 15953906 (Version 3)
Quarter: 2019Q2

REPORT INFORMATION
  Report Type: Spontaneous
  Country: US (occurrence: US)
  Receive Date: 20190213
  Receipt Date: 20190430
  Transmission Date: 20190711
  Serious: No
  Sender: FDA-Public Use
  Company Number: US-BIOGEN-2019BI00695794

PATIENT
  Sex: Male

DRUGS (2)
  1. TECFIDERA [Suspect]
     Active Substance: DIMETHYL FUMARATE
     Indication: MULTIPLE SCLEROSIS
     Route: 050
     Dates: start: 201805
  2. TECFIDERA [Suspect]
     Active Substance: DIMETHYL FUMARATE
     Dosage: TAKE 1 CAPSULE BY?MOUTH TWICE A DAY
     Route: 048
     Dates: start: 201804, end: 201805

REACTIONS (6)
  - Pyrexia [Recovered/Resolved]
  - Abscess oral [Recovered/Resolved]
  - Multiple sclerosis [Not Recovered/Not Resolved]
  - Product dose omission [Recovered/Resolved]
  - Drug ineffective [Not Recovered/Not Resolved]
  - Influenza [Recovered/Resolved]
